FAERS Safety Report 15321341 (Version 1)
Quarter: 2018Q3

REPORT INFORMATION
  Report Type: Spontaneous
  Country: US (occurrence: US)
  Receive Date: 20180827
  Receipt Date: 20180827
  Transmission Date: 20181010
  Serious: Yes (Hospitalization, Other)
  Sender: FDA-Public Use
  Company Number: US-AMAG PHARMACEUTICALS, INC.-AMAG201804581

PATIENT
  Age: 0 Day
  Sex: Male
  Weight: 2.24 kg

DRUGS (1)
  1. MAKENA [Suspect]
     Active Substance: HYDROXYPROGESTERONE CAPROATE
     Indication: FOETAL EXPOSURE DURING PREGNANCY
     Dosage: 250 MG/ML, WEEKLY
     Route: 064
     Dates: start: 20180516, end: 20180806

REACTIONS (3)
  - Neonatal respiratory distress [Unknown]
  - Selective eating disorder [Unknown]
  - Premature baby [Unknown]

NARRATIVE: CASE EVENT DATE: 20180813
